FAERS Safety Report 9272124 (Version 1)
Quarter: 2013Q2

REPORT INFORMATION
  Report Type: Spontaneous
  Country: US (occurrence: US)
  Receive Date: 20130506
  Receipt Date: 20130506
  Transmission Date: 20140414
  Serious: Yes (Other)
  Sender: FDA-Public Use
  Company Number: CHPA2013US007337

PATIENT
  Age: 66 Year
  Sex: Male

DRUGS (7)
  1. EXCEDRIN EXTRA STRENGTH [Suspect]
     Indication: HEADACHE
     Dosage: 1 DF, PRN
     Route: 048
  2. EXCEDRIN EXTRA STRENGTH [Suspect]
     Dosage: 2 DF, PRN
     Route: 048
  3. EXCEDRIN EXTRA STRENGTH [Suspect]
     Indication: HEADACHE
     Dosage: 1 DF, PRN
     Route: 048
  4. EXCEDRIN EXTRA STRENGTH [Suspect]
     Dosage: 2 DF, PRN
     Route: 048
  5. ASPIRIN [Concomitant]
     Dosage: UNK, UNK
  6. BUFERIN [Concomitant]
     Dosage: UNK, UNK
  7. ALEVE [Concomitant]
     Dosage: UNK, UNK

REACTIONS (6)
  - Intervertebral disc degeneration [Not Recovered/Not Resolved]
  - Hypertension [Recovering/Resolving]
  - Carpal tunnel syndrome [Recovered/Resolved]
  - Nephrolithiasis [Recovered/Resolved]
  - Back pain [Recovering/Resolving]
  - Underdose [Unknown]
